FAERS Safety Report 8962541 (Version 1)
Quarter: 2012Q4

REPORT INFORMATION
  Report Type: Spontaneous
  Country: US (occurrence: None)
  Receive Date: 20121206
  Receipt Date: 20121206
  Transmission Date: 20130627
  Serious: Yes (Other)
  Sender: FDA-Public Use
  Company Number: 2012P1066296

PATIENT
  Age: 65 Year
  Sex: Female

DRUGS (14)
  1. ZINACEF [Suspect]
     Indication: PNEUMONIA
     Dates: start: 20090810
  2. METRONIDAZOLE [Suspect]
  3. BIOCLAVID [Suspect]
  4. THIAMINE [Concomitant]
  5. POTASSIUM CHLORIDE [Concomitant]
  6. PLAVIX [Concomitant]
  7. ASPIRIN [Concomitant]
  8. CIPROFLOXACIN [Concomitant]
  9. PARACETAMOL [Concomitant]
  10. PANTOPRAZOLE [Concomitant]
  11. FERROUS SULFATE [Concomitant]
  12. RISPERIDONE [Concomitant]
  13. VITAMIN B12 [Concomitant]
  14. HEART MAGNYL [Concomitant]

REACTIONS (7)
  - Disbacteriosis [None]
  - Gastrooesophageal reflux disease [None]
  - Fungal skin infection [None]
  - Hallucination [None]
  - Obsessive-compulsive disorder [None]
  - Delirium [None]
  - Psychotic disorder [None]
